FAERS Safety Report 4507016-5 (Version None)
Quarter: 2004Q4

REPORT INFORMATION
  Report Type: 
  Country: None (occurrence: None)
  Receive Date: 20041117
  Receipt Date: 20041101
  Transmission Date: 20050328
  Serious: No
  Sender: FDA-Public Use
  Company Number: 2004AP05605

PATIENT
  Age: 59 Year
  Sex: Female

DRUGS (2)
  1. MEROPENEM [Suspect]
     Dosage: 2 G DAILY
     Dates: start: 20040724, end: 20040726
  2. PERINDOPRIL [Suspect]
     Dosage: 2 MG DAILY
     Dates: start: 20040721, end: 20040723

REACTIONS (5)
  - DERMATITIS EXFOLIATIVE [None]
  - PETECHIAE [None]
  - PRURITUS [None]
  - RASH ERYTHEMATOUS [None]
  - RASH MACULO-PAPULAR [None]
